FAERS Safety Report 18359080 (Version 1)
Quarter: 2020Q4

REPORT INFORMATION
  Report Type: Spontaneous
  Country: US (occurrence: US)
  Receive Date: 20201008
  Receipt Date: 20201008
  Transmission Date: 20210114
  Serious: No
  Sender: FDA-Public Use
  Company Number: US-INDIVIOR US-INDV-121616-2019

PATIENT

DRUGS (1)
  1. BUPRENORPHINE. [Suspect]
     Active Substance: BUPRENORPHINE
     Indication: PRODUCT USED FOR UNKNOWN INDICATION
     Dosage: UNK, TAKING MORE PRESCRIBED DOSE OF 4 MG
     Route: 065

REACTIONS (3)
  - Adverse drug reaction [Unknown]
  - Anxiety [Unknown]
  - Intentional product use issue [Not Recovered/Not Resolved]
